FAERS Safety Report 7804364-8 (Version None)
Quarter: 2011Q4

REPORT INFORMATION
  Report Type: 
  Country: None (occurrence: None)
  Receive Date: 20111010
  Receipt Date: 20110928
  Transmission Date: 20120403
  Serious: Yes (Other)
  Sender: FDA-Public Use
  Company Number: GB-SANOFI-AVENTIS-2011SA063835

PATIENT
  Age: 54 Year
  Sex: Female

DRUGS (2)
  1. DRONEDARONE HCL [Suspect]
     Route: 048
     Dates: start: 20110805, end: 20110805
  2. SOTALOL HCL [Concomitant]
     Route: 065
     Dates: start: 20091231, end: 20110801

REACTIONS (3)
  - COLD SWEAT [None]
  - FLUSHING [None]
  - MALAISE [None]
